FAERS Safety Report 14048038 (Version 1)
Quarter: 2017Q4

REPORT INFORMATION
  Report Type: Spontaneous
  Country: NZ (occurrence: NZ)
  Receive Date: 20171005
  Receipt Date: 20171005
  Transmission Date: 20180321
  Serious: Yes (Hospitalization)
  Sender: FDA-Public Use
  Company Number: NZ-SA-2017SA178011

PATIENT

DRUGS (1)
  1. FEXOFENADINE [Suspect]
     Active Substance: FEXOFENADINE\FEXOFENADINE HYDROCHLORIDE
     Route: 065

REACTIONS (3)
  - Respiratory failure [Unknown]
  - Multiple organ dysfunction syndrome [Unknown]
  - Anaphylactic reaction [Unknown]
